FAERS Safety Report 17557320 (Version 1)
Quarter: 2020Q1

REPORT INFORMATION
  Report Type: Spontaneous
  Country: CN (occurrence: CN)
  Receive Date: 20200318
  Receipt Date: 20200318
  Transmission Date: 20200409
  Serious: Yes (Other)
  Sender: FDA-Public Use
  Company Number: CN-ASTRAZENECA-2020SE35855

PATIENT
  Age: 79 Year
  Sex: Female

DRUGS (1)
  1. IRESSA [Suspect]
     Active Substance: GEFITINIB
     Indication: NON-SMALL CELL LUNG CANCER
     Dosage: 1.0DF UNKNOWN
     Route: 048

REACTIONS (4)
  - Pruritus [Recovered/Resolved]
  - Drug resistance [Unknown]
  - Nail disorder [Recovered/Resolved]
  - Metastasis [Unknown]
